FAERS Safety Report 18170275 (Version 2)
Quarter: 2020Q3

REPORT INFORMATION
  Report Type: Other
  Country: CA (occurrence: CA)
  Receive Date: 20200819
  Receipt Date: 20200930
  Transmission Date: 20201103
  Serious: Yes (Life-Threatening, Hospitalization, Other)
  Sender: FDA-Public Use
  Company Number: CA-ASTELLAS-2020US027659

PATIENT
  Age: 16 Year
  Sex: Male

DRUGS (18)
  1. AMPHOTERICIN B, LIPOSOME [Suspect]
     Active Substance: AMPHOTERICIN B
     Route: 042
  2. DIPHENHYDRAMINE. [Concomitant]
     Active Substance: DIPHENHYDRAMINE
     Indication: PREMEDICATION
     Dosage: UNK UNK, UNKNOWN FREQ.
     Route: 065
  3. TACROLIMUS. [Suspect]
     Active Substance: TACROLIMUS
     Indication: IMMUNOSUPPRESSANT DRUG THERAPY
     Dosage: UNK UNK, UNKNOWN FREQ.
     Route: 065
  4. MYCOPHENOLATE MOFETIL. [Suspect]
     Active Substance: MYCOPHENOLATE MOFETIL
     Indication: IMMUNOSUPPRESSANT DRUG THERAPY
     Route: 065
  5. METHYLPREDNISOLONE. [Suspect]
     Active Substance: METHYLPREDNISOLONE
     Indication: IMMUNOSUPPRESSANT DRUG THERAPY
     Route: 065
  6. MYCOPHENOLATE MOFETIL. [Suspect]
     Active Substance: MYCOPHENOLATE MOFETIL
     Route: 065
  7. AMPHOTERICIN B, LIPOSOME [Suspect]
     Active Substance: AMPHOTERICIN B
     Indication: MUCORMYCOSIS
     Dosage: UNK UNK, UNKNOWN FREQ.
     Route: 061
  8. MYCOPHENOLATE MOFETIL. [Suspect]
     Active Substance: MYCOPHENOLATE MOFETIL
     Indication: RENAL TRANSPLANT
     Route: 065
  9. BASILIXIMAB [Suspect]
     Active Substance: BASILIXIMAB
     Indication: IMMUNOSUPPRESSANT DRUG THERAPY
     Route: 065
  10. PREDNISONE. [Suspect]
     Active Substance: PREDNISONE
     Indication: IMMUNOSUPPRESSANT DRUG THERAPY
     Route: 048
  11. SIMULECT [Suspect]
     Active Substance: BASILIXIMAB
     Indication: RENAL TRANSPLANT
     Route: 065
  12. MYCOPHENOLATE MOFETIL. [Suspect]
     Active Substance: MYCOPHENOLATE MOFETIL
     Dosage: 750 MG, EVERY 5 DAYS
     Route: 065
  13. CEPHALEXIN [CEFALEXIN] [Concomitant]
     Active Substance: CEPHALEXIN
     Indication: CELLULITIS
     Dosage: UNK UNK, UNKNOWN FREQ.
     Route: 065
  14. ACETAMINOPHEN. [Concomitant]
     Active Substance: ACETAMINOPHEN
     Indication: PREMEDICATION
     Dosage: UNK UNK, UNKNOWN FREQ.
     Route: 065
  15. SIMULECT [Suspect]
     Active Substance: BASILIXIMAB
     Indication: IMMUNOSUPPRESSANT DRUG THERAPY
  16. PREDNISONE. [Suspect]
     Active Substance: PREDNISONE
     Route: 048
  17. AMPHOTERICIN B, LIPOSOME [Suspect]
     Active Substance: AMPHOTERICIN B
     Indication: MUCORMYCOSIS
     Dosage: UNK UNK, UNKNOWN FREQ.
     Route: 041
  18. POSACONAZOLE [Concomitant]
     Active Substance: POSACONAZOLE
     Indication: PREMEDICATION
     Route: 065

REACTIONS (19)
  - Mucormycosis [Recovered/Resolved]
  - Flushing [Recovered/Resolved]
  - Overdose [Recovered/Resolved]
  - Renal tubular necrosis [Recovered/Resolved]
  - Graft complication [Recovered/Resolved]
  - Chest discomfort [Recovered/Resolved]
  - Device related infection [Recovered/Resolved]
  - Hyperglycaemia [Recovered/Resolved]
  - Cellulitis [Recovered/Resolved]
  - Tachycardia [Recovered/Resolved]
  - Nephropathy toxic [Recovered/Resolved]
  - Catheter site infection [Recovered/Resolved]
  - Polyomavirus-associated nephropathy [Recovered/Resolved]
  - Hypotension [Recovered/Resolved]
  - Renal injury [Recovered/Resolved]
  - Toxicity to various agents [Recovered/Resolved]
  - Skin infection [Recovered/Resolved]
  - Fungal skin infection [Recovered/Resolved]
  - Skin necrosis [Recovered/Resolved]
